FAERS Safety Report 6716168-8 (Version None)
Quarter: 2010Q2

REPORT INFORMATION
  Report Type: 
  Country: None (occurrence: None)
  Receive Date: 20100507
  Receipt Date: 20100504
  Transmission Date: 20101027
  Serious: Yes (Death, Life-Threatening, Hospitalization, Disabling)
  Sender: FDA-Public Use
  Company Number: US-MERCK-1004USA03408

PATIENT
  Age: 82 Year
  Sex: Female

DRUGS (13)
  1. JANUVIA [Suspect]
     Indication: DIABETES MELLITUS
     Route: 048
     Dates: start: 20091101, end: 20100420
  2. TOPROL-XL [Concomitant]
     Route: 048
  3. QUINAPRIL HYDROCHLORIDE [Concomitant]
     Route: 065
  4. CADUET [Concomitant]
     Route: 065
  5. TRICOR [Concomitant]
     Route: 065
  6. COUMADIN [Concomitant]
     Route: 065
  7. ACTOS [Concomitant]
     Route: 065
  8. LOVAZA [Concomitant]
     Route: 065
  9. POTASSIUM (UNSPECIFIED) [Concomitant]
     Route: 065
  10. SYNTHROID [Concomitant]
     Route: 065
  11. ALENDRONATE SODIUM [Concomitant]
     Route: 065
  12. DIGOXIN [Concomitant]
     Route: 065
  13. HYDROCHLOROTHIAZIDE [Concomitant]
     Route: 065

REACTIONS (7)
  - CHOLELITHIASIS [None]
  - DIABETES MELLITUS [None]
  - PANCREATITIS [None]
  - PNEUMONIA [None]
  - RENAL FAILURE ACUTE [None]
  - RESPIRATORY FAILURE [None]
  - SEPTIC SHOCK [None]
